FAERS Safety Report 13441966 (Version 3)
Quarter: 2017Q2

REPORT INFORMATION
  Report Type: Spontaneous
  Country: DE (occurrence: DE)
  Receive Date: 20170414
  Receipt Date: 20170526
  Transmission Date: 20170830
  Serious: Yes (Life-Threatening, Hospitalization, Other)
  Sender: FDA-Public Use
  Company Number: DE-BRISTOL-MYERS SQUIBB COMPANY-BMS-2017-024737

PATIENT
  Age: 68 Year
  Sex: Male
  Weight: 71 kg

DRUGS (2)
  1. CARBIMAZOLE [Suspect]
     Active Substance: CARBIMAZOLE
     Indication: PRODUCT USED FOR UNKNOWN INDICATION
     Route: 065
  2. NIVOLUMAB [Suspect]
     Active Substance: NIVOLUMAB
     Indication: LUNG ADENOCARCINOMA
     Dosage: 240 MG, UNK
     Route: 065
     Dates: start: 20170209

REACTIONS (10)
  - General physical health deterioration [Recovering/Resolving]
  - Cough [Unknown]
  - Depressed mood [Unknown]
  - Drug-induced liver injury [Recovering/Resolving]
  - Helicobacter infection [Unknown]
  - Tumour compression [Unknown]
  - Hyponatraemia [Unknown]
  - Oesophageal candidiasis [Unknown]
  - Duodenitis [Unknown]
  - Aspiration [Unknown]

NARRATIVE: CASE EVENT DATE: 20170222
